FAERS Safety Report 7473482-9 (Version None)
Quarter: 2011Q2

REPORT INFORMATION
  Report Type: 
  Country: None (occurrence: None)
  Receive Date: 20110511
  Receipt Date: 20110509
  Transmission Date: 20111010
  Serious: Yes (Hospitalization)
  Sender: FDA-Public Use
  Company Number: FR-EISAI INC-E2090-01605-SPO-FR

PATIENT
  Age: 45 Year
  Sex: Female

DRUGS (3)
  1. ZONEGRAN [Suspect]
     Dosage: INCREASED UP TO 300 MG DAILY
     Route: 048
     Dates: start: 20101201
  2. ZONEGRAN [Suspect]
     Indication: EPILEPSY
     Route: 048
     Dates: start: 20100101, end: 20101201
  3. KEPPRA [Concomitant]
     Indication: EPILEPSY
     Route: 048

REACTIONS (5)
  - MEMORY IMPAIRMENT [None]
  - FATIGUE [None]
  - BRAIN NEOPLASM MALIGNANT [None]
  - CONFUSIONAL STATE [None]
  - AGGRESSION [None]
